FAERS Safety Report 4933993-4 (Version None)
Quarter: 2006Q1

REPORT INFORMATION
  Report Type: 
  Country: None (occurrence: None)
  Receive Date: 20060307
  Receipt Date: 20060224
  Transmission Date: 20060701
  Serious: Yes (Other)
  Sender: FDA-Public Use
  Company Number: JP-JNJFOC-20060102371

PATIENT
  Age: 56 Year
  Sex: Male

DRUGS (2)
  1. ITRIZOLE [Suspect]
     Indication: NAIL TINEA
     Route: 048
     Dates: start: 20050901, end: 20060106
  2. PEGINTERFERON ALFA 2A [Concomitant]
     Route: 058
     Dates: start: 20050527, end: 20060106

REACTIONS (1)
  - WHITE BLOOD CELL COUNT DECREASED [None]
